FAERS Safety Report 16608173 (Version 1)
Quarter: 2019Q3

REPORT INFORMATION
  Report Type: Spontaneous
  Country: US (occurrence: US)
  Receive Date: 20190722
  Receipt Date: 20190722
  Transmission Date: 20191004
  Serious: Yes (Other)
  Sender: FDA-Public Use
  Company Number: US-CURIUM-200700181

PATIENT
  Age: 74 Year
  Sex: Male

DRUGS (1)
  1. ULTRA-TECHNEKOW DTE [Suspect]
     Active Substance: TECHNETIUM TC-99M SODIUM PERTECHNETATE
     Indication: RADIOISOTOPE SCAN
     Dosage: 1
     Route: 042
     Dates: start: 20051116, end: 20051116

REACTIONS (6)
  - Vomiting [Recovered/Resolved]
  - Lung neoplasm malignant [Not Recovered/Not Resolved]
  - Rash [Recovered/Resolved]
  - Pyrexia [Recovered/Resolved]
  - Peripheral coldness [Not Recovered/Not Resolved]
  - Chills [Not Recovered/Not Resolved]

NARRATIVE: CASE EVENT DATE: 20051116
